FAERS Safety Report 9945097 (Version 1)
Quarter: 2014Q1

REPORT INFORMATION
  Report Type: Report from Study
  Country: US (occurrence: US)
  Receive Date: 20140303
  Receipt Date: 20140303
  Transmission Date: 20141002
  Serious: No
  Sender: FDA-Public Use
  Company Number: US-ABBVIE-13P-163-1052519-00

PATIENT
  Age: 12 Year
  Sex: Male

DRUGS (2)
  1. HUMIRA [Suspect]
     Indication: CROHN^S DISEASE
     Dates: start: 201210, end: 20130130
  2. PROBIOTIC [Concomitant]
     Indication: SUPPLEMENTATION THERAPY

REACTIONS (2)
  - Pyrexia [Recovering/Resolving]
  - Clostridium difficile infection [Recovering/Resolving]
